FAERS Safety Report 12278370 (Version 1)
Quarter: 2016Q2

REPORT INFORMATION
  Report Type: Report from Study
  Country: BR (occurrence: BR)
  Receive Date: 20160418
  Receipt Date: 20160418
  Transmission Date: 20160815
  Serious: Yes (Hospitalization, Disabling, Other)
  Sender: FDA-Public Use
  Company Number: BR-ABBVIE-16K-020-1604789-00

PATIENT
  Sex: Male
  Weight: 87 kg

DRUGS (1)
  1. HUMIRA [Suspect]
     Active Substance: ADALIMUMAB
     Indication: PSORIATIC ARTHROPATHY
     Route: 058
     Dates: start: 2015, end: 201512

REACTIONS (7)
  - Fatigue [Recovered/Resolved]
  - Arterial occlusive disease [Recovered/Resolved]
  - Brain neoplasm benign [Recovered/Resolved]
  - Blood pressure fluctuation [Recovered/Resolved]
  - Impatience [Recovered/Resolved]
  - Muscular weakness [Recovered/Resolved]
  - Irritability [Recovered/Resolved]

NARRATIVE: CASE EVENT DATE: 2015
